FAERS Safety Report 8219388-9 (Version None)
Quarter: 2012Q1

REPORT INFORMATION
  Report Type: 
  Country: None (occurrence: None)
  Receive Date: 20120319
  Receipt Date: 20120314
  Transmission Date: 20120608
  Serious: Yes (Congenital Anomaly, Other)
  Sender: FDA-Public Use
  Company Number: US-PFIZER INC-2011293436

PATIENT
  Sex: Female

DRUGS (12)
  1. ZOFRAN [Concomitant]
     Dosage: 8 MG, UNK
     Route: 064
     Dates: start: 20070509
  2. ZOLOFT [Suspect]
     Dosage: 100 MG, 1X/DAY
     Route: 064
     Dates: start: 20070101
  3. SERAX [Concomitant]
     Indication: INSOMNIA
     Dosage: 10 TO 15 MG
     Route: 064
  4. BUTORPHANOL [Concomitant]
     Dosage: 2 MG, UNK
     Route: 064
     Dates: start: 20070723
  5. COLACE [Concomitant]
     Dosage: 100 MG, 2X/DAY
     Route: 064
  6. ZOLOFT [Suspect]
     Dosage: 50 MG, 1X/DAY
     Route: 064
     Dates: start: 20060101
  7. AMBIEN [Concomitant]
     Dosage: 10 MG, UNK
     Route: 064
     Dates: start: 20070910
  8. MULTI-VITAMINS [Concomitant]
     Dosage: 1 TABLET, DAILY
     Route: 064
  9. ZOLOFT [Suspect]
     Indication: POSTPARTUM DEPRESSION
     Dosage: 25 MG, 1X/DAY FOR 7 DAYS
     Route: 064
     Dates: start: 20060504, end: 20060101
  10. PROMETHAZINE [Concomitant]
     Dosage: 25 MG, UNK
     Route: 064
     Dates: start: 20070508
  11. PERCOCET [Concomitant]
     Dosage: 100 MG, UNK
     Route: 064
     Dates: start: 20070820
  12. TERBUTALINE [Concomitant]
     Dosage: 0.25 MG EVERY 30MINS THRICE DAILY, UNK
     Route: 064
     Dates: start: 20070722, end: 20070723

REACTIONS (7)
  - PREMATURE BABY [None]
  - HEART DISEASE CONGENITAL [None]
  - MATERNAL EXPOSURE TIMING UNSPECIFIED [None]
  - PULMONARY ARTERY ATRESIA [None]
  - ATRIAL SEPTAL DEFECT [None]
  - TRICUSPID VALVE DISEASE [None]
  - PATENT DUCTUS ARTERIOSUS [None]
